FAERS Safety Report 7293622-4 (Version None)
Quarter: 2011Q1

REPORT INFORMATION
  Report Type: 
  Country: None (occurrence: None)
  Receive Date: 20110215
  Receipt Date: 20110209
  Transmission Date: 20110831
  Serious: Yes (Hospitalization)
  Sender: FDA-Public Use
  Company Number: A0892922A

PATIENT
  Age: 68 Year
  Sex: Female

DRUGS (18)
  1. OXYCODONE [Concomitant]
     Indication: ARTHRITIS
  2. DOXYCYCLINE HYCLATE [Concomitant]
  3. PSEUDOEPHEDRINE HCL [Concomitant]
  4. POTASSIUM CHLORIDE [Concomitant]
  5. FUROSEMIDE [Concomitant]
  6. SENOKOT [Concomitant]
     Indication: CONSTIPATION
  7. PROVIGIL [Concomitant]
     Indication: NARCOLEPSY
  8. CHOLECALCIFEROL [Concomitant]
     Indication: VITAMIN D DEFICIENCY
  9. PROTONIX [Concomitant]
  10. METOLAZONE [Concomitant]
  11. SYNTHROID [Concomitant]
     Indication: HYPOTHYROIDISM
  12. SYMBICORT [Concomitant]
     Indication: ASTHMA
  13. VENTOLIN [Suspect]
     Indication: ASTHMA
     Dosage: 2PUFF SIX TIMES PER DAY
     Route: 048
     Dates: start: 20090911
  14. PREMARIN [Concomitant]
     Indication: HORMONE REPLACEMENT THERAPY
  15. CENTRUM SILVER [Concomitant]
  16. LIBRIUM [Concomitant]
     Indication: POST-TRAUMATIC STRESS DISORDER
  17. RITALIN [Concomitant]
     Indication: NARCOLEPSY
  18. NITROGLYCERIN [Concomitant]

REACTIONS (3)
  - GALLBLADDER DISORDER [None]
  - DISORIENTATION [None]
  - CONFUSIONAL STATE [None]
